FAERS Safety Report 6289627-2 (Version None)
Quarter: 2009Q3

REPORT INFORMATION
  Report Type: 
  Country: None (occurrence: None)
  Receive Date: 20090730
  Receipt Date: 19930809
  Transmission Date: 20100115
  Serious: No
  Sender: FDA-Public Use
  Company Number: COU931021

PATIENT
  Age: 45 Year
  Sex: Female
  Weight: 84 kg

DRUGS (4)
  1. COUMADIN [Suspect]
     Indication: MESENTERIC VEIN THROMBOSIS
     Route: 048
     Dates: start: 19930725, end: 19930727
  2. PEPCID [Concomitant]
     Dosage: 20 MG AES#DOSE_FREQUENCY: QD
     Route: 048
     Dates: start: 19930722, end: 19931026
  3. AMITRIPTYLINE HCL [Concomitant]
     Dosage: 50 MG AES#DOSE_FREQUENCY: QD
     Route: 048
     Dates: end: 19931026
  4. INSULIN [Concomitant]
     Dosage: AES#DOSE_FREQUENCY: QID - SLIDING SCALE  AES#DOSE_SP_02:QID - SLIDING SCALE DOSE
     Route: 058
     Dates: start: 19930721, end: 19930808

REACTIONS (2)
  - DRUG EXPOSURE DURING PREGNANCY [None]
  - EOSINOPHILIA [None]
